FAERS Safety Report 5303351-1 (Version None)
Quarter: 2007Q2

REPORT INFORMATION
  Report Type: 
  Country: None (occurrence: None)
  Receive Date: 20070420
  Receipt Date: 20070418
  Transmission Date: 20071010
  Serious: Yes (Death, Life-Threatening, Hospitalization)
  Sender: FDA-Public Use
  Company Number: BE-BRISTOL-MYERS SQUIBB COMPANY-13751946

PATIENT
  Age: 68 Year
  Sex: Male

DRUGS (2)
  1. CISPLATIN [Suspect]
     Indication: SQUAMOUS CELL CARCINOMA
     Route: 042
     Dates: start: 20050707, end: 20050707
  2. FLUOROURACIL [Suspect]
     Indication: SQUAMOUS CELL CARCINOMA
     Route: 042
     Dates: start: 20050707, end: 20050707

REACTIONS (6)
  - BLOOD CREATININE INCREASED [None]
  - COMA [None]
  - CONFUSIONAL STATE [None]
  - FEBRILE NEUTROPENIA [None]
  - HYPERGLYCAEMIA [None]
  - HYPERNATRAEMIA [None]
